FAERS Safety Report 6189927-0 (Version None)
Quarter: 2009Q2

REPORT INFORMATION
  Report Type: 
  Country: None (occurrence: None)
  Receive Date: 20090514
  Receipt Date: 20090512
  Transmission Date: 20091009
  Serious: Yes (Other)
  Sender: FDA-Public Use
  Company Number: CA-ASTRAZENECA-2009UW12195

PATIENT
  Age: 74 Year
  Sex: Male

DRUGS (9)
  1. ZOLADEX [Suspect]
     Indication: PROSTATE CANCER
     Route: 058
     Dates: start: 20090224
  2. DIOVAN [Concomitant]
  3. NORVASC [Concomitant]
  4. LIPITOR [Concomitant]
  5. METOPROLOL SUCCINATE [Concomitant]
     Route: 048
  6. NITROGLYCERIN [Concomitant]
     Route: 061
  7. VITAMIN D [Concomitant]
  8. CALCIUM [Concomitant]
  9. SANDOZ-BICALUTAMIDE [Concomitant]
     Route: 048

REACTIONS (2)
  - HYPOTENSION [None]
  - LOSS OF CONSCIOUSNESS [None]
